FAERS Safety Report 4423346-X (Version None)
Quarter: 2004Q3

REPORT INFORMATION
  Report Type: 
  Country: None (occurrence: None)
  Receive Date: 20040806
  Receipt Date: 20040723
  Transmission Date: 20050211
  Serious: Yes (Hospitalization)
  Sender: FDA-Public Use
  Company Number: 04-07-0955

PATIENT
  Age: 86 Year
  Sex: Female

DRUGS (3)
  1. CLOZAPINE [Suspect]
     Indication: ANXIETY
     Dosage: 50MG QD ORAL
     Route: 048
     Dates: start: 20010101, end: 20040601
  2. CLOZAPINE [Suspect]
     Indication: DEMENTIA
     Dosage: 50MG QD ORAL
     Route: 048
     Dates: start: 20010101, end: 20040601
  3. CLOZAPINE [Suspect]
     Indication: PSYCHOTIC DISORDER
     Dosage: 50MG QD ORAL
     Route: 048
     Dates: start: 20010101, end: 20040601

REACTIONS (7)
  - CARDIAC FAILURE CONGESTIVE [None]
  - CORONARY ARTERY DISEASE [None]
  - DIABETES MELLITUS [None]
  - HYPERTENSION [None]
  - OSTEOMYELITIS [None]
  - RESPIRATORY TRACT CONGESTION [None]
  - VOMITING [None]
